FAERS Safety Report 7055322-5 (Version None)
Quarter: 2010Q4

REPORT INFORMATION
  Report Type: 
  Country: None (occurrence: None)
  Receive Date: 20101021
  Receipt Date: 20101013
  Transmission Date: 20110411
  Serious: Yes (Hospitalization)
  Sender: FDA-Public Use
  Company Number: US-ELI_LILLY_AND_COMPANY-US200903003312

PATIENT
  Sex: Female
  Weight: 126.98 kg

DRUGS (13)
  1. BYETTA [Suspect]
     Dates: start: 20060526, end: 20070823
  2. BYETTA [Suspect]
     Dosage: 5 UG, UNK
     Dates: start: 20080101, end: 20080901
  3. CRESTOR [Concomitant]
  4. LIPITOR [Concomitant]
  5. HYZAAR [Concomitant]
  6. POTASSIUM [Concomitant]
  7. SIMVASTATIN [Concomitant]
  8. AZITHROMYCIN [Concomitant]
  9. TEMAZEPAM [Concomitant]
     Indication: INSOMNIA
  10. ASPIRIN [Concomitant]
  11. LOVENOX [Concomitant]
  12. INSULIN [Concomitant]
     Indication: DIABETES MELLITUS
  13. DIURETICS [Concomitant]
     Indication: FLUID RETENTION

REACTIONS (6)
  - ABDOMINAL PAIN UPPER [None]
  - EMOTIONAL DISTRESS [None]
  - HEADACHE [None]
  - OFF LABEL USE [None]
  - PANCREATITIS [None]
  - RENAL FAILURE CHRONIC [None]
